FAERS Safety Report 25935709 (Version 1)
Quarter: 2025Q4

REPORT INFORMATION
  Report Type: Spontaneous
  Country: US (occurrence: US)
  Receive Date: 20251017
  Receipt Date: 20251017
  Transmission Date: 20260117
  Serious: No
  Sender: GLENMARK
  Company Number: US-GLENMARK PHARMACEUTICALS-2024GMK093737

PATIENT

DRUGS (1)
  1. PIMECROLIMUS [Suspect]
     Active Substance: PIMECROLIMUS
     Indication: Perioral dermatitis
     Dosage: UNK, BID (TWICE A DAY)
     Route: 061
     Dates: start: 202407

REACTIONS (6)
  - Dry skin [Not Recovered/Not Resolved]
  - Product use in unapproved indication [Unknown]
  - Poor quality product administered [Unknown]
  - Therapeutic product effect incomplete [Unknown]
  - Product container issue [Unknown]
  - Product leakage [Unknown]
